FAERS Safety Report 17414886 (Version 2)
Quarter: 2020Q1

REPORT INFORMATION
  Report Type: Spontaneous
  Country: ES (occurrence: ES)
  Receive Date: 20200213
  Receipt Date: 20200219
  Transmission Date: 20200409
  Serious: Yes (Other)
  Sender: FDA-Public Use
  Company Number: ES-PFIZER INC-2020051481

PATIENT
  Sex: Female

DRUGS (5)
  1. ACTINOMYCIN D [Suspect]
     Active Substance: DACTINOMYCIN
     Indication: EWING^S SARCOMA
     Dosage: FOUR CYCLES INITIALLY, FIVE MORE CYCLES FOLLOWING SURGERY
     Route: 065
  2. IFOSFAMIDE. [Suspect]
     Active Substance: IFOSFAMIDE
     Indication: EWING^S SARCOMA
     Dosage: FOUR CYCLES INITIALLY, FIVE MORE CYCLES FOLLOWING SURGERY
     Route: 065
  3. DOXORUBICIN HCL [Suspect]
     Active Substance: DOXORUBICIN HYDROCHLORIDE
     Indication: EWING^S SARCOMA
     Dosage: FOUR CYCLES INITIALLY, FIVE MORE CYCLES FOLLOWING SURGERY
     Route: 065
  4. ETOPOSIDE. [Suspect]
     Active Substance: ETOPOSIDE
     Indication: EWING^S SARCOMA
     Dosage: FOUR CYCLES INITIALLY, FIVE MORE CYCLES FOLLOWING SURGERY
     Route: 065
  5. VINCRISTINE SULFATE. [Suspect]
     Active Substance: VINCRISTINE SULFATE
     Indication: EWING^S SARCOMA
     Dosage: FOUR CYCLES INITIALLY, FIVE MORE CYCLES FOLLOWING SURGERY
     Route: 065

REACTIONS (1)
  - Premature menopause [Unknown]
